FAERS Safety Report 24047478 (Version 1)
Quarter: 2024Q3

REPORT INFORMATION
  Report Type: Spontaneous
  Country: US (occurrence: US)
  Receive Date: 20240703
  Receipt Date: 20240703
  Transmission Date: 20241016
  Serious: Yes (Other)
  Sender: Bath and Body Works
  Company Number: US-BATHANDBODY-2024-US-034619

PATIENT
  Age: 46 Year
  Sex: Female
  Weight: 53.52 kg

DRUGS (3)
  1. BATH AND BODY WORKS SPF AT THE BEACH [Suspect]
     Active Substance: AVOBENZONE\HOMOSALATE\OCTISALATE\OCTOCRYLENE
     Indication: Prophylaxis against solar radiation
     Dosage: APPLIED TO BODY MULTIPLE TIMES FOR 1 DAY
     Route: 061
     Dates: start: 20240614, end: 20240614
  2. BATH AND BODY WORKS SPF AT THE BEACH [Suspect]
     Active Substance: AVOBENZONE\HOMOSALATE\OCTISALATE\OCTOCRYLENE
     Indication: Prophylaxis against solar radiation
     Dosage: APPLIED TO BODY MULTIPLE TIMES FOR 1 DAY
     Route: 061
     Dates: start: 20240614, end: 20240614
  3. ADDERALL [Concomitant]
     Active Substance: AMPHETAMINE ASPARTATE\AMPHETAMINE SULFATE\DEXTROAMPHETAMINE SACCHARATE\DEXTROAMPHETAMINE SULFATE

REACTIONS (9)
  - Application site pain [Recovering/Resolving]
  - Scab [Recovering/Resolving]
  - Blister [Unknown]
  - Pain [Recovering/Resolving]
  - Burns second degree [Unknown]
  - Chemical burn [Unknown]
  - Erythema [Recovering/Resolving]
  - Skin irritation [Recovering/Resolving]
  - Skin exfoliation [Recovering/Resolving]

NARRATIVE: CASE EVENT DATE: 20240614
